FAERS Safety Report 7770583-2 (Version None)
Quarter: 2011Q3

REPORT INFORMATION
  Report Type: 
  Country: None (occurrence: None)
  Receive Date: 20110922
  Receipt Date: 20110915
  Transmission Date: 20111222
  Serious: Yes (Death)
  Sender: FDA-Public Use
  Company Number: PHHY2011CL81980

PATIENT
  Sex: Female

DRUGS (1)
  1. VALSARTAN  AND HYDROCHLOROTHIAZIDE [Suspect]
     Dosage: VALSARTAN 160 MG/ HYDROCHLOROTHIAZIDE 12.5 MG

REACTIONS (1)
  - DEATH [None]
